FAERS Safety Report 9152370 (Version 1)
Quarter: 2013Q1

REPORT INFORMATION
  Report Type: Spontaneous
  Country: US (occurrence: US)
  Receive Date: 20130308
  Receipt Date: 20130308
  Transmission Date: 20140127
  Serious: Yes (Hospitalization)
  Sender: FDA-Public Use
  Company Number: US-009507513-1303USA001831

PATIENT
  Age: 73 Year
  Sex: Female

DRUGS (6)
  1. MONTELUKAST SODIUM [Suspect]
  2. VERAPAMIL HYDROCHLORIDE [Concomitant]
  3. SALMETEROL XINAFOATE [Concomitant]
  4. BUDESONIDE [Concomitant]
  5. ALBUTEROL [Concomitant]
  6. TELMISARTAN [Concomitant]

REACTIONS (3)
  - Eczema impetiginous [Unknown]
  - Photosensitivity reaction [Unknown]
  - Drug hypersensitivity [Unknown]
